FAERS Safety Report 7016279-6 (Version None)
Quarter: 2010Q3

REPORT INFORMATION
  Report Type: 
  Country: None (occurrence: None)
  Receive Date: 20100927
  Receipt Date: 20100823
  Transmission Date: 20110219
  Serious: No
  Sender: FDA-Public Use
  Company Number: US-BAYER-201031928NA

PATIENT
  Age: 47 Year
  Sex: Male

DRUGS (1)
  1. MAGNEVIST [Suspect]
     Indication: BRAIN NEOPLASM
     Dosage: AS USED: 14 ML  UNIT DOSE: 20 ML
     Route: 042
     Dates: start: 20100823, end: 20100823

REACTIONS (3)
  - DYSGEUSIA [None]
  - LACRIMATION INCREASED [None]
  - RHINORRHOEA [None]
